FAERS Safety Report 10699982 (Version 1)
Quarter: 2014Q4

REPORT INFORMATION
  Report Type: Spontaneous
  Country: JM (occurrence: JM)
  Receive Date: 20141031
  Receipt Date: 20141031
  Transmission Date: 20150529
  Serious: Yes (Life-Threatening, Hospitalization, Other)
  Sender: FDA-Public Use
  Company Number: JM-APOTEX-2014AP005331

PATIENT
  Sex: Male

DRUGS (2)
  1. INDOMETHACIN                       /00003801/ [Concomitant]
     Active Substance: INDOMETHACIN
     Indication: PRODUCT USED FOR UNKNOWN INDICATION
     Dosage: 50 MG, BID
     Route: 065
  2. ALLOPURINOL. [Suspect]
     Active Substance: ALLOPURINOL
     Indication: GOUTY ARTHRITIS
     Dosage: 300 MG, QD
     Route: 065
     Dates: start: 20120405

REACTIONS (11)
  - Rash [Recovering/Resolving]
  - Confusional state [Recovering/Resolving]
  - Hypersensitivity [Recovering/Resolving]
  - Seizure [Recovering/Resolving]
  - Hepatic failure [Recovering/Resolving]
  - Tubulointerstitial nephritis [Recovering/Resolving]
  - Renal tubular necrosis [Recovering/Resolving]
  - Acute kidney injury [Recovering/Resolving]
  - Hallucination, visual [Recovering/Resolving]
  - Stevens-Johnson syndrome [Recovering/Resolving]
  - Oropharyngeal pain [Recovering/Resolving]
